FAERS Safety Report 9443528 (Version 3)
Quarter: 2014Q1

REPORT INFORMATION
  Report Type: Spontaneous
  Country: GB (occurrence: None)
  Receive Date: 20130802
  Receipt Date: 20140122
  Transmission Date: 20141002
  Serious: Yes (Hospitalization)
  Sender: FDA-Public Use
  Company Number: AUR-APL-2013-06285

PATIENT
  Age: 69 Year
  Sex: Female

DRUGS (7)
  1. CLOPIDOGREL (CLOPIDOGREL) [Suspect]
     Indication: TRANSIENT ISCHAEMIC ATTACK
     Dates: start: 20130711
  2. SIMVASTATIN (SIMVASTATIN) [Concomitant]
  3. FLUOXETINE (FLUOXETINE) [Concomitant]
  4. HYALURONIC ACID (HYALURONIC ACID) [Concomitant]
  5. VITAMIN D (ERGOCALCIFEROL) [Concomitant]
  6. MULTIVITAMIN (MULTIVITAMINS) [Concomitant]
  7. OMEGA-3 ACID (OMEGA-3 FATTY ACIDS) [Concomitant]

REACTIONS (6)
  - Dizziness [None]
  - Transient ischaemic attack [None]
  - Hypoaesthesia [None]
  - Anxiety [None]
  - Feeling abnormal [None]
  - Eustachian tube obstruction [None]
